FAERS Safety Report 21502596 (Version 1)
Quarter: 2022Q4

REPORT INFORMATION
  Report Type: Spontaneous
  Country: TW (occurrence: TW)
  Receive Date: 20221025
  Receipt Date: 20221025
  Transmission Date: 20230112
  Serious: Yes (Hospitalization, Other)
  Sender: FDA-Public Use
  Company Number: TW-BRISTOL-MYERS SQUIBB COMPANY-2022-125758

PATIENT
  Age: 71 Year
  Sex: Male
  Weight: 72 kg

DRUGS (3)
  1. NIVOLUMAB [Suspect]
     Active Substance: NIVOLUMAB
     Indication: Oesophageal carcinoma
     Route: 042
     Dates: start: 202112, end: 202209
  2. AFATINIB [Suspect]
     Active Substance: AFATINIB
     Indication: Oesophageal carcinoma
     Route: 048
     Dates: start: 202109, end: 202202
  3. CYCLOPHOSPHAMIDE [Suspect]
     Active Substance: CYCLOPHOSPHAMIDE
     Indication: Oesophageal carcinoma
     Route: 065
     Dates: start: 202202, end: 202205

REACTIONS (7)
  - Dysphagia [Recovering/Resolving]
  - Dyspnoea [Recovering/Resolving]
  - Swelling [Recovering/Resolving]
  - Pericardial effusion [Unknown]
  - Pulmonary hilum mass [Unknown]
  - Stridor [Unknown]
  - Intentional product use issue [Unknown]

NARRATIVE: CASE EVENT DATE: 20220617
